FAERS Safety Report 9192998 (Version 1)
Quarter: 2013Q1

REPORT INFORMATION
  Report Type: Spontaneous
  Country: US (occurrence: None)
  Receive Date: 20130314
  Receipt Date: 20130314
  Transmission Date: 20140127
  Serious: Yes (Other)
  Sender: FDA-Public Use
  Company Number: 2013034971

PATIENT
  Sex: Male

DRUGS (17)
  1. ZEMAIRA (ALPHA-1 PROTEINASE INHIBITOR (HUMAN)) [Suspect]
     Indication: ALPHA-1 ANTI-TRYPSIN DEFICIENCY
     Dosage: (60 MG/KG 1X/WEE, 9.8 ML/MIN INTRAVENOUS (NOT OTHERWISE SPECIFIED))
     Route: 042
  2. MINCYCLINE (MINOCYCLINE) [Concomitant]
  3. DIPHENHYDRAMINE (DIPHENHYDRAMINE) [Concomitant]
  4. HEPARIN (HEPARIN) [Concomitant]
  5. SODIUM CHLORIDE (SODIUM CHLORIDE) [Concomitant]
  6. EPIPEN (EPINEPHRINE) [Concomitant]
  7. LMX (LIDOCAINE) [Concomitant]
  8. XANAX (ALPRAZOLAM) [Concomitant]
  9. LASIX (FUROSEMIDE) [Concomitant]
  10. LORATIDINE [Concomitant]
  11. OXYCODONE (OXYCODONE) [Concomitant]
  12. ADVAIR (SERETIDE /01420901/) [Concomitant]
  13. OXYGEN (OXYGEN) [Concomitant]
  14. ALBUTEROL (SALBUTAMOL) [Concomitant]
  15. SPIRIVA (TIOTROPIUM BROMIDE) [Concomitant]
  16. SINGULAIR [Concomitant]
  17. K-DUR (POTASSIUM CHLORIDE) [Concomitant]

REACTIONS (1)
  - Lower respiratory tract infection [None]
